FAERS Safety Report 5045449-1 (Version None)
Quarter: 2006Q3

REPORT INFORMATION
  Report Type: 
  Country: None (occurrence: None)
  Receive Date: 20060707
  Receipt Date: 20060629
  Transmission Date: 20061208
  Serious: Yes (Other)
  Sender: FDA-Public Use
  Company Number: PHEH2006US08504

PATIENT
  Sex: Male

DRUGS (2)
  1. CLOZARIL [Suspect]
     Dosage: UNK, UNK
     Dates: start: 19950101
  2. SERENTIL [Suspect]
     Dosage: UNK, UNK

REACTIONS (4)
  - BLOOD POTASSIUM INCREASED [None]
  - PARKINSON'S DISEASE [None]
  - SKIN ULCER [None]
  - TARDIVE DYSKINESIA [None]
